FAERS Safety Report 13098577 (Version 2)
Quarter: 2017Q1

REPORT INFORMATION
  Report Type: Report from Study
  Country: US (occurrence: US)
  Receive Date: 20170109
  Receipt Date: 20170306
  Transmission Date: 20170428
  Serious: Yes (Hospitalization, Other)
  Sender: FDA-Public Use
  Company Number: US-BAYER-2016-152444

PATIENT
  Age: 62 Year
  Sex: Female

DRUGS (3)
  1. STIVARGA [Suspect]
     Active Substance: REGORAFENIB
     Indication: RECTAL CANCER
     Dosage: 120 MG, QD WITH FOOD FOR 21 DAYS AND 7 DAYS OFF
     Route: 048
     Dates: end: 20170209
  2. STIVARGA [Suspect]
     Active Substance: REGORAFENIB
     Indication: RECTAL CANCER
     Dosage: 120 MG, QD (3 WEEKS ON/ 1 WEEK OFF)
     Route: 048
     Dates: start: 20160405
  3. STIVARGA [Suspect]
     Active Substance: REGORAFENIB
     Indication: COLON CANCER
     Dosage: 120 MG, QD (3 WEEKS ON/ 1 WEEK OFF)
     Route: 048
     Dates: start: 20160727, end: 20161226

REACTIONS (9)
  - Abdominal pain [Not Recovered/Not Resolved]
  - Thoracic cavity drainage [None]
  - Pneumonia [Not Recovered/Not Resolved]
  - Diarrhoea [Unknown]
  - Metastases to central nervous system [None]
  - Drug dose omission [None]
  - Hypertension [Not Recovered/Not Resolved]
  - Hypertension [Not Recovered/Not Resolved]
  - Muscular weakness [Recovered/Resolved]

NARRATIVE: CASE EVENT DATE: 2016
